FAERS Safety Report 10228713 (Version 1)
Quarter: 2014Q2

REPORT INFORMATION
  Report Type: Spontaneous
  Country: GB (occurrence: GB)
  Receive Date: 20140610
  Receipt Date: 20140610
  Transmission Date: 20141212
  Serious: Yes (Other)
  Sender: FDA-Public Use
  Company Number: GB-BAXTER-2014BAX028391

PATIENT
  Sex: Female

DRUGS (2)
  1. SODIUM CHLORIDE INTRAVENOUS INFUSION BP 0.9%W/V [Suspect]
     Indication: OTITIS EXTERNA
     Route: 065
     Dates: start: 20130613, end: 20130710
  2. TAZOCIN [Suspect]
     Indication: OTITIS EXTERNA
     Route: 065
     Dates: start: 20130613, end: 20130710

REACTIONS (3)
  - Pain [Unknown]
  - Dizziness [Unknown]
  - Hypersensitivity [Unknown]
